FAERS Safety Report 15075063 (Version 1)
Quarter: 2018Q2

REPORT INFORMATION
  Report Type: Spontaneous
  Country: US (occurrence: US)
  Receive Date: 20180627
  Receipt Date: 20180627
  Transmission Date: 20180711
  Serious: Yes (Other)
  Sender: FDA-Public Use
  Company Number: US-SAOL THERAPEUTICS-2017SAO01764

PATIENT
  Age: 57 Year
  Sex: Female

DRUGS (2)
  1. BACLOFEN. [Suspect]
     Active Substance: BACLOFEN
     Dosage: 52.02 ?G, \DAY
     Route: 037
  2. DILAUDID [Suspect]
     Active Substance: HYDROMORPHONE HYDROCHLORIDE
     Dosage: 2.601 MG, \DAY
     Route: 037

REACTIONS (3)
  - Device failure [Recovered/Resolved]
  - Device damage [Recovered/Resolved]
  - Weight decreased [Unknown]

NARRATIVE: CASE EVENT DATE: 20171022
